FAERS Safety Report 18906381 (Version 1)
Quarter: 2021Q1

REPORT INFORMATION
  Report Type: Spontaneous
  Country: US (occurrence: US)
  Receive Date: 20210217
  Receipt Date: 20210217
  Transmission Date: 20210420
  Serious: Yes (Other)
  Sender: FDA-Public Use
  Company Number: US-ELI_LILLY_AND_COMPANY-US202102003882

PATIENT
  Sex: Female

DRUGS (1)
  1. BAMLANIVIMAB. [Suspect]
     Active Substance: BAMLANIVIMAB
     Indication: COVID-19
     Dosage: 700 MG, SINGLE
     Route: 065
     Dates: start: 20210204

REACTIONS (9)
  - Hyperhidrosis [Unknown]
  - Feeling abnormal [Unknown]
  - Palpitations [Unknown]
  - Chest discomfort [Unknown]
  - Nausea [Unknown]
  - Chest pain [Unknown]
  - Feeling hot [Unknown]
  - Syncope [Unknown]
  - Peripheral coldness [Unknown]

NARRATIVE: CASE EVENT DATE: 20210204
